FAERS Safety Report 8163399-9 (Version None)
Quarter: 2012Q1

REPORT INFORMATION
  Report Type: 
  Country: None (occurrence: None)
  Receive Date: 20120224
  Receipt Date: 20120215
  Transmission Date: 20120608
  Serious: Yes (Other)
  Sender: FDA-Public Use
  Company Number: CA-JNJFOC-20120208881

PATIENT
  Sex: Female
  Weight: 99.79 kg

DRUGS (9)
  1. CALCIUM [Concomitant]
     Route: 065
  2. TRAZODONE HCL [Concomitant]
     Route: 065
  3. RABEPRAZOLE SODIUM [Concomitant]
     Route: 065
  4. ZOPICLONE [Concomitant]
     Route: 065
  5. VITAMIN D [Concomitant]
     Route: 065
  6. ACCUPRIL [Concomitant]
     Route: 065
  7. IMURAN [Concomitant]
     Route: 048
  8. REMICADE [Suspect]
     Indication: RHEUMATOID ARTHRITIS
     Route: 042
     Dates: start: 20110609
  9. REMICADE [Suspect]
     Indication: COLITIS ULCERATIVE
     Route: 042
     Dates: start: 20110609

REACTIONS (2)
  - HORNER'S SYNDROME [None]
  - MIGRAINE [None]
